FAERS Safety Report 4383420-3 (Version None)
Quarter: 2004Q2

REPORT INFORMATION
  Report Type: 
  Country: None (occurrence: None)
  Receive Date: 20040623
  Receipt Date: 20040526
  Transmission Date: 20050107
  Serious: Yes (Disabling)
  Sender: FDA-Public Use
  Company Number: PHBS2004JP07024

PATIENT
  Age: 44 Year
  Sex: Male

DRUGS (3)
  1. SANDIMMUNE [Suspect]
     Indication: BONE MARROW TRANSPLANT
     Dosage: 190 MG/D
     Dates: start: 20040420, end: 20040514
  2. SANDIMMUNE [Suspect]
     Dosage: 100 MG/D
     Dates: start: 20040525, end: 20040527
  3. TACROLIMUS [Concomitant]
     Dates: start: 20040518, end: 20040523

REACTIONS (8)
  - BLOOD CREATININE INCREASED [None]
  - DIZZINESS [None]
  - DRUG LEVEL INCREASED [None]
  - HEADACHE [None]
  - HEART RATE DECREASED [None]
  - HYPERTENSION [None]
  - RENAL DISORDER [None]
  - SINUS BRADYCARDIA [None]
